FAERS Safety Report 6042174-5 (Version None)
Quarter: 2009Q1

REPORT INFORMATION
  Report Type: 
  Country: None (occurrence: None)
  Receive Date: 20090116
  Receipt Date: 20090107
  Transmission Date: 20090719
  Serious: Yes (Other)
  Sender: FDA-Public Use
  Company Number: PHEH2009US00620

PATIENT
  Sex: Male

DRUGS (7)
  1. ZOMETA [Suspect]
     Indication: MULTIPLE MYELOMA
     Dosage: 4 MG, QMO
     Route: 042
     Dates: start: 20061101, end: 20070201
  2. RADIATION THERAPY [Concomitant]
     Indication: PROSTATE CANCER
     Dosage: UNK
  3. VELCADE [Concomitant]
  4. DECADRON                                /CAN/ [Concomitant]
  5. FLOMAX [Concomitant]
  6. LASIX [Concomitant]
  7. SYNTHROID [Concomitant]

REACTIONS (2)
  - BONE DISORDER [None]
  - OSTEOMYELITIS [None]
